FAERS Safety Report 7676330-7 (Version None)
Quarter: 2011Q3

REPORT INFORMATION
  Report Type: 
  Country: None (occurrence: None)
  Receive Date: 20110805
  Receipt Date: 20110721
  Transmission Date: 20111222
  Serious: Yes (Other)
  Sender: FDA-Public Use
  Company Number: 1000021540

PATIENT
  Age: 61 Year
  Sex: Female
  Weight: 55 kg

DRUGS (6)
  1. LEXAPRO [Suspect]
     Indication: DEPRESSION
     Dosage: 10 MG (10 MG, 1 IN 1 D), ORAL
     Route: 048
     Dates: end: 20110208
  2. SYMBICORT (BUDESONIDE, FORMOTEROL FUMARATE) (INHALANT) (BUDESONIDE, FO [Concomitant]
  3. LEXAPRO [Suspect]
     Indication: DEPRESSION
     Dosage: 20 MG (20 MG, 1 IN 1 D), ORAL; 10 MG (10 MG, 1 IN 1 D), ORAL
     Route: 048
     Dates: start: 20110209, end: 20110511
  4. LEXAPRO [Suspect]
     Indication: DEPRESSION
     Dosage: 20 MG (20 MG, 1 IN 1 D), ORAL; 10 MG (10 MG, 1 IN 1 D), ORAL
     Route: 048
     Dates: start: 20110501
  5. SPIRIVA (TIOTROPIUM BROMIDE) (TIOPROPIUM BROMIDE) [Concomitant]
  6. SIMVASTATIN (SIMVASTATIN) (TABLETS) (SIMVASTATIN) [Concomitant]

REACTIONS (2)
  - ANAL HAEMORRHAGE [None]
  - ECCHYMOSIS [None]
